FAERS Safety Report 11474811 (Version 1)
Quarter: 2015Q3

REPORT INFORMATION
  Report Type: Report from Study
  Country: FR (occurrence: FR)
  Receive Date: 20150908
  Receipt Date: 20150908
  Transmission Date: 20151125
  Serious: No
  Sender: FDA-Public Use
  Company Number: FR-JAZZ-2014-FR-016815

PATIENT
  Age: 37 Year
  Sex: Female
  Weight: 62 kg

DRUGS (9)
  1. XYREM [Suspect]
     Active Substance: SODIUM OXYBATE
     Dosage: 1.6 G/2.25 G, BID
     Route: 048
     Dates: start: 20141220
  2. MIGPRIV [Concomitant]
     Active Substance: ASPIRIN LYSINE\METOCLOPRAMIDE HYDROCHLORIDE
     Indication: PRODUCT USED FOR UNKNOWN INDICATION
     Dosage: UNK
  3. OMEPRAZOLE. [Concomitant]
     Active Substance: OMEPRAZOLE
     Indication: PRODUCT USED FOR UNKNOWN INDICATION
     Dosage: UNK
  4. XYREM [Suspect]
     Active Substance: SODIUM OXYBATE
     Indication: NARCOLEPSY
     Dosage: 2.25 G, BID
     Route: 048
     Dates: start: 20141118, end: 201411
  5. TRIMEBUTINE [Concomitant]
     Active Substance: TRIMEBUTINE
     Indication: PRODUCT USED FOR UNKNOWN INDICATION
     Dosage: UNK
  6. XYREM [Suspect]
     Active Substance: SODIUM OXYBATE
     Indication: CATAPLEXY
     Dosage: 3 G, BID
     Route: 048
     Dates: start: 20141127, end: 20141127
  7. XYREM [Suspect]
     Active Substance: SODIUM OXYBATE
     Dosage: 2.25 G, BID
     Route: 048
     Dates: start: 20141128, end: 2014
  8. IBUPROFENE [Concomitant]
     Active Substance: IBUPROFEN
     Indication: PRODUCT USED FOR UNKNOWN INDICATION
     Dosage: UNK
  9. PARACETAMOL [Concomitant]
     Active Substance: ACETAMINOPHEN
     Indication: PRODUCT USED FOR UNKNOWN INDICATION
     Dosage: UNK

REACTIONS (34)
  - Thirst [Unknown]
  - Insomnia [Unknown]
  - Nasal congestion [Unknown]
  - Parosmia [Unknown]
  - Abdominal pain upper [Unknown]
  - Vision blurred [Unknown]
  - Disturbance in attention [Unknown]
  - Decreased appetite [Recovered/Resolved]
  - Fatigue [Unknown]
  - Coordination abnormal [Unknown]
  - Dysmenorrhoea [Unknown]
  - Nightmare [Recovered/Resolved]
  - Head discomfort [Unknown]
  - Sinusitis [Unknown]
  - Dysphagia [Unknown]
  - Lethargy [Unknown]
  - Muscle contracture [Unknown]
  - Nasopharyngitis [Unknown]
  - Eye pruritus [Unknown]
  - Anxiety [Unknown]
  - Gastrooesophageal reflux disease [Unknown]
  - Menorrhagia [Unknown]
  - Nausea [Unknown]
  - Palpitations [Unknown]
  - Feeling abnormal [Unknown]
  - Pain [Unknown]
  - Constipation [Unknown]
  - Dyskinesia [Recovered/Resolved]
  - Foaming at mouth [Unknown]
  - Hair texture abnormal [Unknown]
  - Memory impairment [Unknown]
  - Dyspnoea [Unknown]
  - Weight decreased [Unknown]
  - Hyperhidrosis [Unknown]

NARRATIVE: CASE EVENT DATE: 20141118
